FAERS Safety Report 9552863 (Version 1)
Quarter: 2013Q3

REPORT INFORMATION
  Report Type: Spontaneous
  Country: US (occurrence: US)
  Receive Date: 20130925
  Receipt Date: 20130925
  Transmission Date: 20140515
  Serious: No
  Sender: FDA-Public Use
  Company Number: US-PURDUE-USA-2013-0100838

PATIENT
  Age: 16 Year
  Sex: Male

DRUGS (2)
  1. MORPHINE SULFATE (SIMILAR TO NDA 19-516) [Suspect]
     Indication: PAIN
     Dosage: 300-350 MG, DAILY
     Route: 048
  2. PARENTERAL [Concomitant]
     Indication: NUTRITIONAL SUPPLEMENTATION
     Route: 051

REACTIONS (1)
  - Inadequate analgesia [Unknown]
